FAERS Safety Report 18279524 (Version 3)
Quarter: 2021Q1

REPORT INFORMATION
  Report Type: Spontaneous
  Country: US (occurrence: US)
  Receive Date: 20200917
  Receipt Date: 20210126
  Transmission Date: 20210419
  Serious: Yes (Other)
  Sender: FDA-Public Use
  Company Number: US-PFIZER INC-2016286502

PATIENT
  Age: 59 Year
  Sex: Female

DRUGS (3)
  1. PREMARIN [Suspect]
     Active Substance: ESTROGENS, CONJUGATED
     Dosage: 1 GRAM TWICE A WEEK 90 DAYS
     Route: 067
  2. PREMARIN [Suspect]
     Active Substance: ESTROGENS, CONJUGATED
     Dosage: UNK, 2X/WEEK (1 APPLICATOR PV TWICE WEEKLY)
     Route: 067
  3. XANAX [Concomitant]
     Active Substance: ALPRAZOLAM
     Dosage: 0.5 MG, 1X/DAY

REACTIONS (7)
  - Postmenopausal haemorrhage [Unknown]
  - Generalised anxiety disorder [Unknown]
  - Gastrooesophageal reflux disease [Unknown]
  - Off label use [Unknown]
  - Product use issue [Unknown]
  - Hyperlipidaemia [Unknown]
  - Intentional product misuse [Unknown]
